FAERS Safety Report 14657608 (Version 2)
Quarter: 2018Q2

REPORT INFORMATION
  Report Type: Report from Study
  Country: MX (occurrence: MX)
  Receive Date: 20180320
  Receipt Date: 20180402
  Transmission Date: 20180711
  Serious: Yes (Other)
  Sender: FDA-Public Use
  Company Number: PHHY2018MX041267

PATIENT
  Sex: Female
  Weight: 53 kg

DRUGS (10)
  1. JANUVIA [Concomitant]
     Active Substance: SITAGLIPTIN PHOSPHATE
     Indication: DIABETES MELLITUS
     Dosage: 50 MG, QD (APPROXIMATELY 6 MONTHS AGO)
     Route: 065
  2. VESSEL DUE [Concomitant]
     Indication: CARDIOVASCULAR INSUFFICIENCY
     Dosage: 4 DF, QD
     Route: 065
     Dates: start: 201801
  3. LACTEOL FORTE [Concomitant]
     Indication: LARGE INTESTINAL OBSTRUCTION
     Dosage: 1 DF, QD (APPROXIMATELY 1 YEAR AGO)
     Route: 065
  4. PANCREOFLAT [Concomitant]
     Indication: LARGE INTESTINAL OBSTRUCTION
     Dosage: 3 DF, QD (APPROXIMATELY 1 YEAR AGO)
     Route: 065
  5. PROVASC [Concomitant]
     Indication: BLOOD PRESSURE ABNORMAL
     Dosage: 1 DF (300/10), QD
     Route: 065
     Dates: start: 201709
  6. RESOTRANS [Concomitant]
     Indication: LAXATIVE SUPPORTIVE CARE
     Dosage: 3-4 TIMES PER WEEK (1 YEARS AGO)
     Route: 065
  7. METFORMIN [Suspect]
     Active Substance: METFORMIN HYDROCHLORIDE
     Indication: DIABETES MELLITUS
     Dosage: 1 DF, QD (35 YEARS AGO )
     Route: 048
  8. SELOKEN [Concomitant]
     Active Substance: METOPROLOL
     Indication: BLOOD PRESSURE ABNORMAL
     Dosage: 2 MG, QD
     Route: 065
     Dates: start: 201709
  9. SALOFALK [Concomitant]
     Active Substance: MESALAMINE
     Indication: LARGE INTESTINAL OBSTRUCTION
     Dosage: 1 DF, QD (APPROXIMATELY 2 YEARS AGO)
     Route: 065
  10. PANTOZOL [Concomitant]
     Active Substance: PANTOPRAZOLE SODIUM
     Indication: LARGE INTESTINAL OBSTRUCTION
     Dosage: 2 DF, QD
     Route: 065
     Dates: start: 201801

REACTIONS (2)
  - Cardiovascular disorder [Unknown]
  - Colon cancer [Not Recovered/Not Resolved]

NARRATIVE: CASE EVENT DATE: 2006
